FAERS Safety Report 21244325 (Version 2)
Quarter: 2022Q3

REPORT INFORMATION
  Report Type: Spontaneous
  Country: US (occurrence: US)
  Receive Date: 20220823
  Receipt Date: 20220909
  Transmission Date: 20221027
  Serious: Yes (Hospitalization)
  Sender: FDA-Public Use
  Company Number: US-PFIZER INC-202201067525

PATIENT
  Age: 73 Year
  Sex: Male
  Weight: 76.2 kg

DRUGS (1)
  1. PAXLOVID [Suspect]
     Active Substance: NIRMATRELVIR\RITONAVIR
     Indication: COVID-19 treatment
     Dosage: [PF-07321332 300 MG]/[RITONAVIR 100 MG]
     Dates: start: 20220816, end: 20220816

REACTIONS (11)
  - Dysgeusia [Recovered/Resolved]
  - Insomnia [Recovered/Resolved]
  - Sleep disorder [Recovered/Resolved]
  - Dysphonia [Recovered/Resolved]
  - Throat irritation [Recovered/Resolved]
  - Oropharyngeal pain [Recovered/Resolved]
  - Headache [Not Recovered/Not Resolved]
  - Fatigue [Not Recovered/Not Resolved]
  - Ill-defined disorder [Recovered/Resolved]
  - Renal pain [Unknown]
  - Pain [Unknown]

NARRATIVE: CASE EVENT DATE: 20220816
